FAERS Safety Report 21096034 (Version 1)
Quarter: 2022Q3

REPORT INFORMATION
  Report Type: Spontaneous
  Country: DE (occurrence: DE)
  Receive Date: 20220718
  Receipt Date: 20220718
  Transmission Date: 20221026
  Serious: No
  Sender: FDA-Public Use
  Company Number: DE-GSKCCFEMEA-Case-01533359_AE-60152

PATIENT

DRUGS (1)
  1. SOTROVIMAB [Suspect]
     Active Substance: SOTROVIMAB
     Indication: COVID-19
     Dosage: 1000 MG

REACTIONS (2)
  - Product prescribing issue [Unknown]
  - Product prescribing error [Unknown]
